FAERS Safety Report 10403633 (Version 1)
Quarter: 2014Q3

REPORT INFORMATION
  Report Type: Spontaneous
  Country: FR (occurrence: FR)
  Receive Date: 20140822
  Receipt Date: 20140822
  Transmission Date: 20150326
  Serious: Yes (Hospitalization)
  Sender: FDA-Public Use
  Company Number: FR-ELI_LILLY_AND_COMPANY-FR201408004021

PATIENT
  Age: 57 Year
  Sex: Female

DRUGS (13)
  1. TRAMADOL [Concomitant]
     Active Substance: TRAMADOL
  2. CYMBALTA [Suspect]
     Active Substance: DULOXETINE HYDROCHLORIDE
     Indication: DIABETIC NEUROPATHY
     Dosage: 1 DF, UNKNOWN
     Route: 048
     Dates: start: 20140702
  3. DEXERYL                            /00557601/ [Concomitant]
     Active Substance: GLYCERIN\PARAFFIN
  4. DIAMICRON [Concomitant]
     Active Substance: GLICLAZIDE
  5. KARDEGIC [Concomitant]
     Active Substance: ASPIRIN LYSINE
  6. INEXIUM                            /01479302/ [Concomitant]
     Active Substance: ESOMEPRAZOLE MAGNESIUM
  7. KENZEN [Concomitant]
     Active Substance: CANDESARTAN
  8. METFORMINE [Concomitant]
     Active Substance: METFORMIN HYDROCHLORIDE
  9. NOZINAN [Concomitant]
     Active Substance: LEVOMEPROMAZINE
  10. LEVEMIR [Concomitant]
     Active Substance: INSULIN DETEMIR
  11. LORATADINE. [Concomitant]
     Active Substance: LORATADINE
  12. VICTOZA [Concomitant]
     Active Substance: LIRAGLUTIDE
  13. DAFALGAN [Concomitant]
     Active Substance: ACETAMINOPHEN

REACTIONS (1)
  - Vascular purpura [Unknown]

NARRATIVE: CASE EVENT DATE: 20140718
